FAERS Safety Report 8623620-7 (Version None)
Quarter: 2012Q3

REPORT INFORMATION
  Report Type: 
  Country: None (occurrence: None)
  Receive Date: 20120827
  Receipt Date: 20120815
  Transmission Date: 20120928
  Serious: Yes (Hospitalization, Other)
  Sender: FDA-Public Use
  Company Number: US-ELI_LILLY_AND_COMPANY-US201205003236

PATIENT
  Age: 68 Year
  Sex: Female
  Weight: 79.365 kg

DRUGS (17)
  1. FORTEO [Suspect]
     Indication: OSTEOPOROSIS
     Dosage: UNK, QD
     Dates: start: 20111101
  2. THEOPHYLLINE [Concomitant]
     Dosage: 300 MG, BID
  3. AMLODIPINE [Concomitant]
     Dosage: 5 MG, QD
  4. BENICAR [Concomitant]
     Dosage: 40 MG, QD
  5. ALBUTEROL [Concomitant]
     Dosage: 90 UG, OTHER
  6. METOPROLOL TARTRATE [Concomitant]
     Dosage: 175 MG, QD
  7. ALLEGRA [Concomitant]
     Dosage: 180 MG, QD
  8. GLUCOZIDE [Concomitant]
     Dosage: 2.5 MG, QD
  9. FUROSEMIDE [Concomitant]
     Dosage: 80 MG, QD
  10. ASPIRIN [Concomitant]
     Dosage: 325 MG, QD
  11. LOVASTATIN [Concomitant]
     Dosage: 40 MG, QD
  12. LACTINEX [Concomitant]
     Dosage: UNK, BID
  13. KLOR-CON [Concomitant]
     Dosage: 20 MG, QD
  14. DOXAZOSIN MESYLATE [Concomitant]
     Dosage: 2 MG, UNKNOWN
  15. AMOXICILLIN AND CLAVULANATE POTASSIUM [Concomitant]
     Dosage: UNK, BID
     Route: 048
  16. MULTI-VITAMIN [Concomitant]
     Dosage: UNK, QD
  17. AMLODIPINE [Concomitant]
     Dosage: 2.5 MG, QD

REACTIONS (1)
  - CELLULITIS [None]
